FAERS Safety Report 4843763-3 (Version None)
Quarter: 2005Q4

REPORT INFORMATION
  Report Type: 
  Country: None (occurrence: None)
  Receive Date: 20051129
  Receipt Date: 20051118
  Transmission Date: 20060501
  Serious: Yes (Other)
  Sender: FDA-Public Use
  Company Number: 200514000GDS

PATIENT
  Age: 80 Year
  Sex: Female

DRUGS (26)
  1. AVELOX [Suspect]
     Dosage: 400 MG, ORAL
     Route: 048
  2. ACTAMINOPHEN [Concomitant]
  3. ACETYLSALICYLIC ACID ENT CTD [Concomitant]
  4. ANTACID TAB [Concomitant]
  5. BUDESONIDE [Concomitant]
  6. CALCIUM GLUCONATE [Concomitant]
  7. DIMENHYDRINATE [Concomitant]
  8. DOCUSATE SODIUM [Concomitant]
  9. ENOXAPARIN [Concomitant]
  10. FENTANYL [Concomitant]
  11. FUROSEMIDE [Concomitant]
  12. IPRATROPIUM BROMIDE [Concomitant]
  13. LEVOTHYROXINE SODIUM [Concomitant]
  14. LIPITOR [Concomitant]
  15. LORAZEPAM [Concomitant]
  16. METOPROLOL [Concomitant]
  17. NITROGLYCERIN [Concomitant]
  18. OXAZEPAM [Concomitant]
  19. POTASSIUM CHLORIDE [Concomitant]
  20. PREDNISONE [Concomitant]
  21. RAMIPRIL [Concomitant]
  22. SALBUTAMOL [Concomitant]
  23. SALMETEROL [Concomitant]
  24. SENNOSIDE [Concomitant]
  25. SPIRONOLACTONE [Concomitant]
  26. ZOPICLONE [Concomitant]

REACTIONS (1)
  - HYPOGLYCAEMIA [None]
